FAERS Safety Report 9242526 (Version 3)
Quarter: 2013Q2

REPORT INFORMATION
  Report Type: Report from Study
  Country: BR (occurrence: BR)
  Receive Date: 20130419
  Receipt Date: 20130510
  Transmission Date: 20140414
  Serious: Yes (Other)
  Sender: FDA-Public Use
  Company Number: BR-ROCHE-1151362

PATIENT
  Sex: Female
  Weight: 63 kg

DRUGS (10)
  1. MABTHERA [Suspect]
     Indication: RHEUMATOID ARTHRITIS
     Route: 042
     Dates: start: 20100301, end: 20121101
  2. MABTHERA [Suspect]
     Indication: SYSTEMIC LUPUS ERYTHEMATOSUS
     Route: 042
     Dates: start: 20110127
  3. CORTISONE [Concomitant]
  4. PARACETAMOL [Concomitant]
     Indication: PREMEDICATION
     Route: 065
  5. MESTINON [Concomitant]
     Indication: MYASTHENIA GRAVIS
     Route: 048
     Dates: start: 20080214
  6. PURAN T4 [Concomitant]
     Route: 065
  7. PREDNISONE [Concomitant]
     Indication: SYSTEMIC LUPUS ERYTHEMATOSUS
     Route: 048
     Dates: start: 20080214
  8. LEVOTHYROXINE [Concomitant]
     Indication: HYPOTHYROIDISM
     Route: 048
     Dates: start: 20080214
  9. ALENDRONATE [Concomitant]
     Indication: OSTEOPOROSIS
     Route: 048
     Dates: start: 20080214
  10. PAROXETINE [Concomitant]
     Indication: DEPRESSION
     Route: 048
     Dates: start: 20080214

REACTIONS (3)
  - Immunodeficiency [Not Recovered/Not Resolved]
  - Asthenia [Unknown]
  - Leukopenia [Not Recovered/Not Resolved]
